FAERS Safety Report 24056746 (Version 1)
Quarter: 2024Q3

REPORT INFORMATION
  Report Type: Spontaneous
  Country: CN (occurrence: CN)
  Receive Date: 20240705
  Receipt Date: 20240705
  Transmission Date: 20241017
  Serious: Yes (Other)
  Sender: ROCHE
  Company Number: CN-ROCHE-10000015071

PATIENT
  Age: 52 Year
  Sex: Male

DRUGS (11)
  1. BEVACIZUMAB [Suspect]
     Active Substance: BEVACIZUMAB
     Indication: Lung neoplasm malignant
     Route: 042
     Dates: start: 20220506
  2. SINTILIMAB [Suspect]
     Active Substance: SINTILIMAB
     Indication: Lung neoplasm malignant
     Dosage: DAY 1
     Route: 042
     Dates: start: 20220406
  3. SINTILIMAB [Suspect]
     Active Substance: SINTILIMAB
     Dosage: DAY 1
     Route: 042
     Dates: start: 20220506
  4. PACLITAXEL [Suspect]
     Active Substance: PACLITAXEL
     Indication: Lung neoplasm malignant
     Dosage: DAY 1
     Route: 042
     Dates: start: 20220406
  5. PACLITAXEL [Suspect]
     Active Substance: PACLITAXEL
     Dosage: DAY 1
     Route: 042
     Dates: start: 20220506
  6. CARBOPLATIN [Suspect]
     Active Substance: CARBOPLATIN
     Indication: Lung neoplasm malignant
     Dosage: DAY 1
     Route: 042
     Dates: start: 20220406
  7. CARBOPLATIN [Suspect]
     Active Substance: CARBOPLATIN
     Dosage: DAY 1
     Route: 042
     Dates: start: 20220506
  8. ZOLEDRONIC ACID [Concomitant]
     Active Substance: ZOLEDRONIC ACID
     Dosage: DAY 1
     Route: 042
  9. OSIMERTINIB [Concomitant]
     Active Substance: OSIMERTINIB
     Route: 048
     Dates: start: 20220613
  10. TACROLIMUS [Concomitant]
     Active Substance: TACROLIMUS
     Dates: start: 20220810
  11. aumonertinib [Concomitant]
     Dates: start: 20220920

REACTIONS (3)
  - Gastrointestinal toxicity [Unknown]
  - Neurotoxicity [Unknown]
  - Metastasis [Unknown]

NARRATIVE: CASE EVENT DATE: 20220601
